FAERS Safety Report 12486819 (Version 2)
Quarter: 2016Q2

REPORT INFORMATION
  Report Type: Spontaneous
  Country: US (occurrence: US)
  Receive Date: 20160621
  Receipt Date: 20160623
  Transmission Date: 20160815
  Serious: No
  Sender: FDA-Public Use
  Company Number: US-ALLERGAN-1641843US

PATIENT
  Age: 28 Year
  Sex: Female

DRUGS (1)
  1. LILETTA [Suspect]
     Active Substance: LEVONORGESTREL
     Indication: CHEMICAL CONTRACEPTION
     Dosage: 18.6 ?G, SINGLE
     Route: 015
     Dates: start: 201510

REACTIONS (4)
  - Somatic symptom disorder of pregnancy [Recovered/Resolved]
  - Breast discharge [Recovered/Resolved]
  - Nausea [Recovered/Resolved]
  - Metrorrhagia [Not Recovered/Not Resolved]

NARRATIVE: CASE EVENT DATE: 201510
